FAERS Safety Report 21585816 (Version 1)
Quarter: 2022Q4

REPORT INFORMATION
  Report Type: Spontaneous
  Country: FR (occurrence: FR)
  Receive Date: 20221111
  Receipt Date: 20221111
  Transmission Date: 20230112
  Serious: Yes (Disabling)
  Sender: FDA-Public Use
  Company Number: None

PATIENT
  Age: 44 Year
  Sex: Female
  Weight: 48 kg

DRUGS (7)
  1. DIAZEPAM [Suspect]
     Active Substance: DIAZEPAM
     Indication: Anxiety
     Dosage: UNIT DOSE:10 MG FREQUENCY TIME :1 DAYS ,+ 0.5 TO 1 CP MORE IF NEEDED
  2. QUETIAPINE [Suspect]
     Active Substance: QUETIAPINE
     Indication: Depression
     Dosage: UNIT DOSE :50 MG ,FREQUENCY TIME :1 DAYS.
  3. DULOXETINE HYDROCHLORIDE [Suspect]
     Active Substance: DULOXETINE HYDROCHLORIDE
     Indication: Depression
     Dosage: UNIT DOSE:90 MG ,FREQUENCY 1 DAYS
  4. CYAMEMAZINE [Suspect]
     Active Substance: CYAMEMAZINE
     Indication: Mixed anxiety and depressive disorder
     Dosage: FORM STRENGTH :25 MG, UNIT DOSE :0.5 DOSAGE FORMS ,FREQUENCY TIME :1 DAYS.SCORED FILM-COATED TABLET
  5. SPRAVATO [Suspect]
     Active Substance: ESKETAMINE
     Indication: Depression
     Dosage: FORM STRENGTH: 28 MG, UNIT DOSE:112 MG, DURATION 24 DAYS ,FREQUENCY TIME 1 WEEKS.
     Dates: start: 20220124, end: 20220217
  6. SPRAVATO [Suspect]
     Active Substance: ESKETAMINE
     Dosage: UNIT DOSE:84MG, DURATION 28DAYS ,FREQUENCY TIME 1 WEEKS.
     Dates: start: 20220221, end: 20220321
  7. SPRAVATO [Suspect]
     Active Substance: ESKETAMINE
     Dosage: UNIT DOSE:84MG, DURATION 27 DAYS ,FREQUENCY TIME15 DAYS.
     Dates: start: 20220405, end: 20220502

REACTIONS (1)
  - Myalgia [Not Recovered/Not Resolved]

NARRATIVE: CASE EVENT DATE: 20220401
